FAERS Safety Report 6667709-0 (Version None)
Quarter: 2010Q1

REPORT INFORMATION
  Report Type: 
  Country: None (occurrence: None)
  Receive Date: 20100331
  Receipt Date: 20100322
  Transmission Date: 20100710
  Serious: Yes (Hospitalization)
  Sender: FDA-Public Use
  Company Number: 6058969

PATIENT
  Age: 80 Year
  Sex: Female

DRUGS (5)
  1. LEVOTHYROX      (LEVOTHYROXINE SODIUM) [Suspect]
     Indication: DRUG USE FOR UNKNOWN INDICATION
     Dosage: 1 DOSAGE FORMS (1 DOSAGE FORMS, 1 IN 1 D), ORAL
     Route: 048
  2. UN-ALPHA (ALFACALCIDOL) [Concomitant]
  3. CALTRATE D3        (COLECALCIFEROL, CALCIUM CARBONATE) [Concomitant]
  4. FOLIC ACID [Concomitant]
  5. CIBADREX (BENAZEPRIL) [Concomitant]

REACTIONS (6)
  - CONFUSIONAL STATE [None]
  - DECREASED APPETITE [None]
  - DEHYDRATION [None]
  - DISORIENTATION [None]
  - HYPERCALCAEMIA [None]
  - RENAL FAILURE ACUTE [None]
